FAERS Safety Report 19033782 (Version 1)
Quarter: 2021Q1

REPORT INFORMATION
  Report Type: Spontaneous
  Country: JP (occurrence: JP)
  Receive Date: 20210319
  Receipt Date: 20210319
  Transmission Date: 20210420
  Serious: Yes (Disabling)
  Sender: FDA-Public Use
  Company Number: JP-ALLERGAN-2111026US

PATIENT
  Sex: Male

DRUGS (4)
  1. HYALEIN [Concomitant]
     Active Substance: HYALURONATE SODIUM
     Dosage: UNK
     Dates: start: 20120810, end: 20210217
  2. ALPHAGAN P [Suspect]
     Active Substance: BRIMONIDINE TARTRATE
     Indication: GLAUCOMA
     Dosage: 2 GTT, BID
     Route: 047
     Dates: start: 20130318, end: 20210217
  3. TAPROS [Concomitant]
     Dosage: UNK
     Dates: start: 20150424, end: 20151019
  4. LUMIGAN [Concomitant]
     Active Substance: BIMATOPROST
     Dosage: UNK
     Dates: start: 20151019, end: 20160831

REACTIONS (2)
  - Corneal opacity [Recovering/Resolving]
  - Corneal opacity [Recovering/Resolving]

NARRATIVE: CASE EVENT DATE: 20190708
